FAERS Safety Report 7536171-8 (Version None)
Quarter: 2011Q2

REPORT INFORMATION
  Report Type: 
  Country: None (occurrence: None)
  Receive Date: 20110608
  Receipt Date: 20110608
  Transmission Date: 20111010
  Serious: Yes (Hospitalization, Other)
  Sender: FDA-Public Use
  Company Number: None

PATIENT
  Age: 63 Year
  Sex: Male

DRUGS (2)
  1. WARFARIN SODIUM [Suspect]
     Indication: PULMONARY EMBOLISM
     Dosage: TITRATED BY PHARMACIST QDAY PO
     Route: 048
     Dates: start: 20110219, end: 20110303
  2. LOVENOX [Suspect]
     Indication: PULMONARY EMBOLISM
     Dosage: 1 MG/KG Q12H SQ
     Route: 058
     Dates: start: 20110219, end: 20110224

REACTIONS (2)
  - INTERNATIONAL NORMALISED RATIO INCREASED [None]
  - EPISTAXIS [None]
